FAERS Safety Report 9698958 (Version 1)
Quarter: 2013Q4

REPORT INFORMATION
  Report Type: Spontaneous
  Country: ZA (occurrence: ZA)
  Receive Date: 20131120
  Receipt Date: 20131120
  Transmission Date: 20140711
  Serious: Yes (Hospitalization)
  Sender: FDA-Public Use
  Company Number: ZA-PFIZER INC-2013330823

PATIENT
  Age: 73 Year
  Sex: Female
  Weight: 60 kg

DRUGS (2)
  1. LYRICA [Suspect]
     Indication: NEUROPATHY PERIPHERAL
     Dosage: 75 MG, 1X/DAY NOCTE (AT NIGHT)
     Route: 048
     Dates: start: 20111105, end: 20130919
  2. KESSAR [Concomitant]
     Indication: OESTROGEN THERAPY
     Dosage: 20 MG, 1X/DAY
     Route: 048

REACTIONS (2)
  - Fall [Unknown]
  - Cholelithiasis [Unknown]
